FAERS Safety Report 9672418 (Version 3)
Quarter: 2013Q4

REPORT INFORMATION
  Report Type: Spontaneous
  Country: FR (occurrence: None)
  Receive Date: 20131105
  Receipt Date: 20131216
  Transmission Date: 20140711
  Serious: Yes (Other)
  Sender: FDA-Public Use
  Company Number: FR-013391

PATIENT
  Age: 26 Year
  Sex: Female
  Weight: 61 kg

DRUGS (5)
  1. MENOPUR (MENOPUR) 75 IU [Suspect]
     Indication: OVULATION INDUCTION
     Route: 058
     Dates: start: 20130914, end: 20130923
  2. ORGALUTRAN (ORGALUTRAN) [Suspect]
     Indication: OVULATION INDUCTION
     Route: 058
     Dates: start: 20130919, end: 20130923
  3. UTROGESTAN [Concomitant]
  4. VIVELLEDOT [Concomitant]
  5. LOVENOX [Concomitant]

REACTIONS (4)
  - Ovarian hyperstimulation syndrome [None]
  - Hepatocellular injury [None]
  - Aspartate aminotransferase increased [None]
  - Alanine aminotransferase increased [None]
